FAERS Safety Report 5514376-5 (Version None)
Quarter: 2007Q4

REPORT INFORMATION
  Report Type: 
  Country: None (occurrence: None)
  Receive Date: 20071113
  Receipt Date: 20070501
  Transmission Date: 20080405
  Serious: No
  Sender: FDA-Public Use
  Company Number: A0649486A

PATIENT
  Age: 60 Year
  Sex: Female

DRUGS (7)
  1. COREG [Suspect]
     Indication: HYPERTENSION
     Dosage: 12.5MG TWICE PER DAY
     Route: 048
     Dates: start: 20020101
  2. GLUCOVANCE [Concomitant]
  3. ZANTAC [Concomitant]
  4. VYTORIN [Concomitant]
  5. ENDURE [Concomitant]
  6. LISINOPRIL [Concomitant]
  7. PLAVIX [Concomitant]

REACTIONS (2)
  - HEART RATE DECREASED [None]
  - HYPERTENSION [None]
